FAERS Safety Report 4443342-6 (Version None)
Quarter: 2004Q3

REPORT INFORMATION
  Report Type: 
  Country: None (occurrence: None)
  Receive Date: 20040728
  Receipt Date: 20040518
  Transmission Date: 20050211
  Serious: No
  Sender: FDA-Public Use
  Company Number: USA040567951

PATIENT
  Age: 57 Year
  Sex: Female

DRUGS (1)
  1. STRATTERA [Suspect]
     Indication: ATTENTION DEFICIT/HYPERACTIVITY DISORDER
     Dosage: 40 MG OTHER
     Dates: start: 20040201, end: 20040501

REACTIONS (6)
  - COLD SWEAT [None]
  - DISTURBANCE IN ATTENTION [None]
  - DRUG INEFFECTIVE [None]
  - FEELING COLD [None]
  - MEMORY IMPAIRMENT [None]
  - READING DISORDER [None]
